FAERS Safety Report 26155568 (Version 1)
Quarter: 2025Q4

REPORT INFORMATION
  Report Type: Spontaneous
  Country: US (occurrence: US)
  Receive Date: 20251215
  Receipt Date: 20251215
  Transmission Date: 20260118
  Serious: Yes (Hospitalization)
  Sender: ALVOGEN
  Company Number: US-ALVOGEN-2025098193

PATIENT
  Sex: Male

DRUGS (2)
  1. FENTANYL [Suspect]
     Active Substance: FENTANYL
     Indication: Back pain
     Dosage: 75 MCG/HR?SINCE SEVERAL YEARS FROM THE SAME PHARMACY
     Route: 062
  2. FENTANYL [Suspect]
     Active Substance: FENTANYL
     Indication: Back pain
     Dosage: 100 MCG/HR?SINCE SEVERAL YEARS FROM THE SAME PHARMACY
     Route: 062

REACTIONS (4)
  - Withdrawal syndrome [Unknown]
  - Product availability issue [Unknown]
  - Product use issue [Unknown]
  - Product dose omission issue [Unknown]

NARRATIVE: CASE EVENT DATE: 20240101
